FAERS Safety Report 5772345-4 (Version None)
Quarter: 2008Q2

REPORT INFORMATION
  Report Type: 
  Country: None (occurrence: None)
  Receive Date: 20080613
  Receipt Date: 20080604
  Transmission Date: 20081010
  Serious: Yes (Other)
  Sender: FDA-Public Use
  Company Number: AU-ROCHE-568628

PATIENT
  Sex: Male

DRUGS (1)
  1. ISOTRETINOIN [Suspect]
     Indication: ACNE
     Dosage: PATIENT THOUGHT HIS DOSE WAS 100 MG BUT HE WAS TAKING TWO DOSE FORMS OF ISOTRETINOIN.
     Route: 065
     Dates: start: 20000101, end: 20020101

REACTIONS (2)
  - DEPRESSION [None]
  - SUICIDE ATTEMPT [None]
